FAERS Safety Report 21072313 (Version 2)
Quarter: 2022Q3

REPORT INFORMATION
  Report Type: Spontaneous
  Country: CH (occurrence: CH)
  Receive Date: 20220712
  Receipt Date: 20220726
  Transmission Date: 20221027
  Serious: Yes (Other)
  Sender: FDA-Public Use
  Company Number: CH-AMERICAN REGENT INC-2022001920

PATIENT
  Age: 19 Year
  Sex: Female
  Weight: 65 kg

DRUGS (2)
  1. FERINJECT [Suspect]
     Active Substance: FERRIC CARBOXYMALTOSE
     Indication: Iron deficiency
     Dosage: ADMINISTERED IN CUBITAL VEIN LEFT, BY INTRAVENOUS ACCESS VENFLON BLUE 22 GAUGE NEEDLE (500 MG,1 IN 1
     Dates: start: 20211210, end: 20211210
  2. FERINJECT [Suspect]
     Active Substance: FERRIC CARBOXYMALTOSE
     Dosage: ADMINISTERED IN CUBITAL VEIN LEFT, BY INTRAVENOUS ACCESS VENFLON BLUE 22 GAUGE NEEDLE (500 MG,1 IN 1
     Dates: start: 20211217, end: 20211217

REACTIONS (4)
  - Vein rupture [Unknown]
  - Infusion site pain [Unknown]
  - Infusion site discolouration [Unknown]
  - Infusion site extravasation [Recovered/Resolved]

NARRATIVE: CASE EVENT DATE: 20211217
